FAERS Safety Report 11312457 (Version 2)
Quarter: 2015Q3

REPORT INFORMATION
  Report Type: Report from Study
  Country: JP (occurrence: JP)
  Receive Date: 20150727
  Receipt Date: 20150814
  Transmission Date: 20151125
  Serious: Yes (Other)
  Sender: FDA-Public Use
  Company Number: PHHY2014JP130721

PATIENT
  Age: 87 Year
  Sex: Male
  Weight: 73 kg

DRUGS (5)
  1. EQUA TAB [Suspect]
     Active Substance: VILDAGLIPTIN
     Indication: TYPE 2 DIABETES MELLITUS
     Dosage: 50 MG, BID
     Route: 048
     Dates: start: 20130827
  2. MICARDIS [Concomitant]
     Active Substance: TELMISARTAN
     Indication: HYPERTENSION
     Route: 048
     Dates: start: 20131025
  3. METFORMIN HYDROCHLORIDE. [Concomitant]
     Active Substance: METFORMIN HYDROCHLORIDE
     Indication: TYPE 2 DIABETES MELLITUS
     Dosage: 500 MG, QD
     Route: 048
  4. KREMEZIN [Concomitant]
     Active Substance: ACTIVATED CHARCOAL
     Indication: RENAL IMPAIRMENT
     Route: 065
     Dates: start: 20140116
  5. PIOGLITAZONE. [Suspect]
     Active Substance: PIOGLITAZONE
     Indication: TYPE 2 DIABETES MELLITUS
     Dosage: 30 MG, QD
     Route: 048

REACTIONS (6)
  - Pulmonary congestion [Recovering/Resolving]
  - Chronic kidney disease [Unknown]
  - Dehydration [Unknown]
  - Off label use [Unknown]
  - Blood creatinine increased [Recovered/Resolved]
  - Cardiac failure [Recovered/Resolved]

NARRATIVE: CASE EVENT DATE: 20131025
